FAERS Safety Report 4874593-4 (Version None)
Quarter: 2006Q1

REPORT INFORMATION
  Report Type: 
  Country: None (occurrence: None)
  Receive Date: 20060106
  Receipt Date: 20051017
  Transmission Date: 20060701
  Serious: Yes (Hospitalization, Other)
  Sender: FDA-Public Use
  Company Number: US-MERCK-0510USA07818

PATIENT
  Age: 58 Year
  Sex: Male
  Weight: 65 kg

DRUGS (8)
  1. VIOXX [Suspect]
     Indication: ARTHRITIS
     Route: 048
     Dates: start: 19991001, end: 20020201
  2. ZOCOR [Concomitant]
     Route: 065
     Dates: start: 19990901, end: 20040801
  3. TALACEN [Concomitant]
     Indication: PAIN
     Route: 065
     Dates: start: 19991001, end: 20021201
  4. CARISOPRODOL [Concomitant]
     Indication: PAIN
     Route: 065
     Dates: start: 19991001
  5. NEURONTIN [Concomitant]
     Indication: PAIN
     Route: 065
     Dates: start: 20010101, end: 20010701
  6. METHYLPREDNISOLONE [Concomitant]
     Indication: PAIN
     Route: 065
     Dates: start: 20010301, end: 20010401
  7. ROXICET [Concomitant]
     Indication: PAIN
     Route: 065
     Dates: start: 20010301, end: 20010401
  8. AMITRIPTYLINE HYDROCHLORIDE [Concomitant]
     Indication: DEPRESSION
     Route: 065
     Dates: start: 19991001

REACTIONS (5)
  - ARTERIOSCLEROSIS [None]
  - BACK INJURY [None]
  - DEPRESSION [None]
  - HYPERTENSION [None]
  - MYOCARDIAL INFARCTION [None]
